FAERS Safety Report 4812100-2 (Version None)
Quarter: 2005Q4

REPORT INFORMATION
  Report Type: 
  Country: None (occurrence: None)
  Receive Date: 20051028
  Receipt Date: 20030825
  Transmission Date: 20060501
  Serious: No
  Sender: FDA-Public Use
  Company Number: US-GLAXOSMITHKLINE-A0423378A

PATIENT
  Age: 59 Year
  Sex: Male

DRUGS (8)
  1. ADVAIR DISKUS 100/50 [Suspect]
     Indication: ASTHMA
     Dosage: 1PUFF TWICE PER DAY
     Route: 055
  2. CALCIUM GLUCONATE [Concomitant]
  3. NORVASC [Concomitant]
  4. CALAN [Concomitant]
  5. VITAMINS [Concomitant]
  6. LIPITOR [Concomitant]
  7. ZOLOFT [Concomitant]
  8. VALIUM [Concomitant]

REACTIONS (3)
  - DYSPNOEA [None]
  - THERAPEUTIC RESPONSE DELAYED [None]
  - THROAT IRRITATION [None]
